FAERS Safety Report 8315000-9 (Version None)
Quarter: 2012Q2

REPORT INFORMATION
  Report Type: 
  Country: None (occurrence: None)
  Receive Date: 20120426
  Receipt Date: 20120206
  Transmission Date: 20120825
  Serious: No
  Sender: FDA-Public Use
  Company Number: US-MUTUAL PHARMACEUTICAL COMPANY, INC.-CLCY20120031

PATIENT
  Sex: Male
  Weight: 106.69 kg

DRUGS (6)
  1. COLCRYS [Suspect]
     Indication: GOUT
     Route: 048
     Dates: start: 20120101, end: 20120201
  2. LIPITOR [Concomitant]
     Indication: CEREBROVASCULAR ACCIDENT
     Route: 048
  3. WARFARIN SODIUM [Concomitant]
     Indication: ATRIAL FIBRILLATION
     Route: 048
  4. NORVASC [Concomitant]
     Indication: HYPERTENSION
     Route: 048
  5. LISINOPRIL [Concomitant]
     Indication: HYPERTENSION
     Route: 048
  6. ASPIRIN [Concomitant]
     Indication: CARDIOVASCULAR EVENT PROPHYLAXIS
     Route: 048

REACTIONS (2)
  - GOUT [None]
  - DRUG INEFFECTIVE [None]
